FAERS Safety Report 5776455-7 (Version None)
Quarter: 2008Q2

REPORT INFORMATION
  Report Type: 
  Country: None (occurrence: None)
  Receive Date: 20080618
  Receipt Date: 20080317
  Transmission Date: 20081010
  Serious: Yes (Hospitalization)
  Sender: FDA-Public Use
  Company Number: US-AMGEN-US269988

PATIENT
  Age: 34 Year
  Sex: Female

DRUGS (1)
  1. EPOGEN [Suspect]
     Indication: DIALYSIS
     Route: 058
     Dates: start: 20070101, end: 20080101

REACTIONS (4)
  - ABSCESS [None]
  - ANAEMIA [None]
  - HAEMATOMA [None]
  - SKIN REACTION [None]
